FAERS Safety Report 6411580-9 (Version None)
Quarter: 2009Q4

REPORT INFORMATION
  Report Type: 
  Country: None (occurrence: None)
  Receive Date: 20091023
  Receipt Date: 20091015
  Transmission Date: 20100525
  Serious: Yes (Hospitalization)
  Sender: FDA-Public Use
  Company Number: DE-AMGEN-US357908

PATIENT
  Age: 80 Year
  Sex: Female
  Weight: 50 kg

DRUGS (8)
  1. ENBREL [Suspect]
     Indication: RHEUMATOID ARTHRITIS
     Route: 058
     Dates: start: 20090309
  2. ACTONEL [Suspect]
     Dosage: UNKNOWN DOSE FROM AN UNKNOWN DATE, DISCONTINUED IN 2009 DUE TO DIARRHOEA
     Route: 048
  3. MORPHINE [Concomitant]
     Dosage: UNKNOWN
     Route: 062
  4. GLUCOCORTICOIDS [Concomitant]
  5. UNSPECIFIED GASTROINTESTINAL AGENT [Concomitant]
  6. UNSPECIFIED DIURETIC [Concomitant]
  7. UNSPECIFIED ANTIHYPERTENSIVE AGENT [Concomitant]
  8. UNSPECIFIED ANALGESIC [Concomitant]

REACTIONS (5)
  - DECUBITUS ULCER [None]
  - DIARRHOEA [None]
  - ENTERITIS [None]
  - IMPAIRED HEALING [None]
  - WEIGHT DECREASED [None]
